FAERS Safety Report 20530814 (Version 1)
Quarter: 2022Q1

REPORT INFORMATION
  Report Type: Other
  Country: GB (occurrence: GB)
  Receive Date: 20220301
  Receipt Date: 20220301
  Transmission Date: 20220423
  Serious: Yes (Life-Threatening, Hospitalization)
  Sender: FDA-Public Use
  Company Number: None

PATIENT
  Sex: Female

DRUGS (2)
  1. FLUOXETINE [Interacting]
     Active Substance: FLUOXETINE HYDROCHLORIDE
     Indication: Depression
     Dosage: 20 MILLIGRAM PER DAY
     Route: 065
     Dates: start: 20200302, end: 20200826
  2. TAMOXIFEN [Interacting]
     Active Substance: TAMOXIFEN
     Indication: Breast cancer
     Dosage: 20 MILLIGRAM PER DAY
     Route: 065
     Dates: start: 20150628

REACTIONS (2)
  - Breast cancer [Not Recovered/Not Resolved]
  - Labelled drug-drug interaction medication error [Unknown]
